FAERS Safety Report 7141088-7 (Version None)
Quarter: 2010Q4

REPORT INFORMATION
  Report Type: 
  Country: None (occurrence: None)
  Receive Date: 20101122
  Receipt Date: 20101112
  Transmission Date: 20110411
  Serious: Yes (Other)
  Sender: FDA-Public Use
  Company Number: 754893

PATIENT
  Age: 72 Year
  Sex: Male

DRUGS (5)
  1. VINCRISTINE SULFATE [Suspect]
     Indication: B-CELL LYMPHOMA
  2. DOXORUBICIN HYDROCHLORIDE [Suspect]
     Indication: B-CELL LYMPHOMA
  3. CYCLOPHOSPHAMIDE [Suspect]
     Indication: B-CELL LYMPHOMA
  4. PREDNISOLONE [Suspect]
     Indication: B-CELL LYMPHOMA
  5. (MABTHERA) [Suspect]
     Indication: B-CELL LYMPHOMA

REACTIONS (2)
  - ANGIOEDEMA [None]
  - CYTOKINE RELEASE SYNDROME [None]
